FAERS Safety Report 9859806 (Version 1)
Quarter: 2014Q1

REPORT INFORMATION
  Report Type: Spontaneous
  Country: FR (occurrence: FR)
  Receive Date: 20140131
  Receipt Date: 20140131
  Transmission Date: 20141002
  Serious: Yes (Hospitalization)
  Sender: FDA-Public Use
  Company Number: FR-UCBSA-110503

PATIENT
  Age: 76 Year
  Sex: Male

DRUGS (14)
  1. KEPPRA [Suspect]
     Indication: PARTIAL SEIZURES
     Dosage: 250MG STRENGTH
     Route: 048
     Dates: start: 20131018, end: 20131024
  2. KEPPRA [Suspect]
     Indication: PARTIAL SEIZURES
     Dosage: 250MG STRENGTH
     Route: 048
     Dates: start: 20131025, end: 20131119
  3. TRILEPTAL [Suspect]
     Route: 048
     Dates: start: 20131031, end: 20131121
  4. INEXIUM [Suspect]
     Dosage: 40MG STRENGTH
     Route: 042
     Dates: start: 20131018, end: 20131019
  5. INEXIUM [Suspect]
     Dosage: 40MG STRENGTH
     Route: 042
     Dates: start: 20131115, end: 20131115
  6. INEXIUM [Suspect]
     Route: 042
     Dates: start: 20131116, end: 20131117
  7. INEXIUM [Suspect]
     Route: 042
     Dates: start: 20131118, end: 20131118
  8. INIPOMP [Suspect]
     Dosage: 40MG STRENGTH
     Route: 048
     Dates: start: 201311, end: 20131128
  9. ATARAX [Concomitant]
     Route: 048
  10. LANSOYL [Concomitant]
     Dosage: 11.7G/15G 2 UNITS DAILY (LIQUID PARAFFIN)
     Route: 048
     Dates: end: 20131119
  11. LIPANTHYL [Concomitant]
     Dosage: 200MG
     Route: 048
  12. CALCIPARINE [Concomitant]
     Route: 058
     Dates: start: 20131103
  13. LANTUS [Concomitant]
     Route: 058
     Dates: start: 20131029
  14. HUMALOG MIX [Concomitant]
     Dosage: 100IU/ML ONE INJECTION THREE TIMES DAILY ACCORDING TO GLYCEMIA.
     Route: 058
     Dates: start: 20131101

REACTIONS (2)
  - Hyponatraemia [Recovered/Resolved]
  - Creatinine renal clearance decreased [Unknown]
